FAERS Safety Report 4791785-3 (Version None)
Quarter: 2005Q4

REPORT INFORMATION
  Report Type: 
  Country: None (occurrence: None)
  Receive Date: 20051005
  Receipt Date: 20050920
  Transmission Date: 20060501
  Serious: Yes (Hospitalization)
  Sender: FDA-Public Use
  Company Number: EWC050945971

PATIENT
  Age: 55 Year
  Sex: Male

DRUGS (1)
  1. TADALAFIL [Suspect]
     Indication: ERECTILE DYSFUNCTION
     Dosage: 20 MG
     Dates: start: 20050101, end: 20050101

REACTIONS (2)
  - DEEP VEIN THROMBOSIS [None]
  - VENOUS THROMBOSIS LIMB [None]
